FAERS Safety Report 7817134-1 (Version None)
Quarter: 2011Q4

REPORT INFORMATION
  Report Type: 
  Country: None (occurrence: None)
  Receive Date: 20111017
  Receipt Date: 20111017
  Transmission Date: 20120403
  Serious: Yes (Death)
  Sender: FDA-Public Use
  Company Number: None

PATIENT
  Age: 40 Year
  Sex: Male
  Weight: 56.8 kg

DRUGS (3)
  1. CETUXIMAB [Suspect]
     Indication: HEAD AND NECK CANCER
     Dosage: 400 MG/M2
     Route: 040
     Dates: start: 20110511, end: 20110511
  2. CETUXIMAB [Suspect]
     Indication: RECURRENT CANCER
     Dosage: 400 MG/M2
     Route: 040
     Dates: start: 20110511, end: 20110511
  3. CETUXIMAB [Concomitant]
     Dosage: 250 MG/M2
     Route: 040
     Dates: start: 20110516, end: 20110627

REACTIONS (23)
  - EAR PAIN [None]
  - MOUTH HAEMORRHAGE [None]
  - TONGUE NEOPLASM MALIGNANT STAGE UNSPECIFIED [None]
  - RECURRENT CANCER [None]
  - VOMITING [None]
  - DIARRHOEA [None]
  - PYREXIA [None]
  - PNEUMONIA [None]
  - PHARYNGEAL ULCERATION [None]
  - CIRCULATORY COLLAPSE [None]
  - POST PROCEDURAL OEDEMA [None]
  - BLOOD PRESSURE IMMEASURABLE [None]
  - HEADACHE [None]
  - HAEMOPTYSIS [None]
  - PHARYNGEAL HAEMORRHAGE [None]
  - PULSE ABSENT [None]
  - ACUTE RESPIRATORY FAILURE [None]
  - NAUSEA [None]
  - STOMATITIS NECROTISING [None]
  - RESPIRATORY ARREST [None]
  - CHILLS [None]
  - POST PROCEDURAL HAEMORRHAGE [None]
  - FALL [None]
